FAERS Safety Report 9277198 (Version 2)
Quarter: 2013Q2

REPORT INFORMATION
  Report Type: Report from Study
  Country: FR (occurrence: FR)
  Receive Date: 20130508
  Receipt Date: 20130612
  Transmission Date: 20140414
  Serious: Yes (Hospitalization)
  Sender: FDA-Public Use
  Company Number: FR-ROCHE-1221610

PATIENT
  Age: 45 Year
  Sex: Female
  Weight: 80 kg

DRUGS (5)
  1. RITUXIMAB [Suspect]
     Indication: PEMPHIGUS
     Route: 065
     Dates: start: 20121009, end: 20121023
  2. CORTANCYL [Suspect]
     Indication: PRODUCT USED FOR UNKNOWN INDICATION
     Route: 048
  3. ATARAX (FRANCE) [Concomitant]
     Indication: ANXIETY
     Route: 048
     Dates: start: 20130109
  4. ALPRAZOLAM [Concomitant]
     Route: 048
  5. ZOLPIDEM [Concomitant]
     Indication: INSOMNIA
     Route: 048

REACTIONS (3)
  - Dyspnoea at rest [Recovered/Resolved]
  - Tachycardia [Unknown]
  - Pyrexia [Unknown]
